FAERS Safety Report 7263855-1 (Version None)
Quarter: 2011Q1

REPORT INFORMATION
  Report Type: 
  Country: None (occurrence: None)
  Receive Date: 20110130
  Receipt Date: 20101202
  Transmission Date: 20110831
  Serious: No
  Sender: FDA-Public Use
  Company Number: US-ABBOTT-10P-163-0689936-00

PATIENT
  Sex: Female
  Weight: 90.8 kg

DRUGS (11)
  1. ANALOG [Concomitant]
     Indication: HYPERTENSION
     Route: 048
  2. CITALOPRAM [Concomitant]
     Indication: ANTIDEPRESSANT THERAPY
     Route: 048
  3. ESTRADIOL [Concomitant]
     Indication: PRODUCT USED FOR UNKNOWN INDICATION
     Route: 048
  4. AMLODIPINE [Concomitant]
     Indication: PRODUCT USED FOR UNKNOWN INDICATION
     Route: 048
  5. LORTAB [Concomitant]
     Indication: PRODUCT USED FOR UNKNOWN INDICATION
     Dosage: DAILY
  6. HUMIRA [Suspect]
     Indication: RHEUMATOID ARTHRITIS
     Dosage: RECEIVED ONLY TWO INJECTIONS.
     Route: 058
     Dates: start: 20101101
  7. HYDROCHLOROTHIAZIDE [Concomitant]
     Indication: PRODUCT USED FOR UNKNOWN INDICATION
     Route: 048
  8. GABAPENTIN [Concomitant]
     Indication: PRODUCT USED FOR UNKNOWN INDICATION
     Route: 048
  9. SOMA [Concomitant]
     Indication: BACK DISORDER
     Dosage: EVERY 2 DAYS OR AS REQUIRED
     Route: 048
  10. BENAZEPRIL HYDROCHLORIDE [Concomitant]
     Indication: SMOKING CESSATION THERAPY
     Route: 048
  11. CELEBREX [Concomitant]
     Indication: PRODUCT USED FOR UNKNOWN INDICATION
     Route: 048

REACTIONS (7)
  - SINUSITIS [None]
  - RHINALGIA [None]
  - MALAISE [None]
  - RENAL PAIN [None]
  - PAIN [None]
  - NIGHT SWEATS [None]
  - ASTHENIA [None]
